FAERS Safety Report 7674360-2 (Version None)
Quarter: 2011Q3

REPORT INFORMATION
  Report Type: 
  Country: None (occurrence: None)
  Receive Date: 20110810
  Receipt Date: 20110804
  Transmission Date: 20111222
  Serious: Yes (Other)
  Sender: FDA-Public Use
  Company Number: SE-PFIZER INC-2011178301

PATIENT
  Age: 55 Year
  Sex: Male

DRUGS (1)
  1. PREDNISOLONE [Suspect]
     Indication: PEMPHIGUS

REACTIONS (6)
  - DIABETES MELLITUS [None]
  - BALANCE DISORDER [None]
  - ASTHENIA [None]
  - MUSCLE SPASMS [None]
  - CATARACT [None]
  - BLOOD CHOLESTEROL INCREASED [None]
